FAERS Safety Report 9402785 (Version 2)
Quarter: 2013Q3

REPORT INFORMATION
  Report Type: Spontaneous
  Country: US (occurrence: US)
  Receive Date: 20130716
  Receipt Date: 20130816
  Transmission Date: 20140515
  Serious: Yes (Other)
  Sender: FDA-Public Use
  Company Number: US-BAYER-2013-083653

PATIENT
  Sex: Female

DRUGS (17)
  1. BETASERON [Suspect]
     Indication: MULTIPLE SCLEROSIS
     Dosage: 0.3 MG, QOD
     Route: 058
     Dates: start: 2004
  2. AMPYRA [Suspect]
     Indication: MULTIPLE SCLEROSIS
     Dosage: 10 MG, EVERY 12 HOURS
     Route: 048
     Dates: start: 201308
  3. AMPYRA [Suspect]
     Indication: GAIT DISTURBANCE
  4. PANTOPRAZOLE [Concomitant]
     Dosage: 20 MG, UNK
  5. METHADONE [Concomitant]
     Dosage: 40 MG, UNK
  6. GABAPENTIN [Concomitant]
     Dosage: 100 MG, UNK
  7. CITALOPRAM [Concomitant]
     Dosage: 10 MG, UNK
  8. CLOBETASOL [Concomitant]
     Dosage: 0.05 UNK, UNK
  9. BACLOFEN [Concomitant]
     Dosage: 10 MG, UNK
  10. LEVETIRACETAM [Concomitant]
     Dosage: 750 MG, UNK
  11. CLOBEX [Concomitant]
     Dosage: 0.05 %, UNK
  12. NYSTATIN [Concomitant]
  13. ALEVE CAPLET [Concomitant]
     Indication: PREMEDICATION
     Dosage: 220 MG, UNK
  14. LISINOPRIL [Concomitant]
     Dosage: UNK
     Dates: start: 201207
  15. ESCITALOPRAM [Concomitant]
     Dosage: UNK
     Dates: start: 201207
  16. LUTEIN [Concomitant]
     Dosage: UNK
     Dates: start: 201305
  17. VITAMIN D3 [Concomitant]
     Dosage: UNK
     Dates: start: 201305

REACTIONS (7)
  - Lower respiratory tract infection [Recovered/Resolved]
  - Gastroenteritis viral [Recovered/Resolved]
  - Diarrhoea [Recovered/Resolved]
  - Abdominal discomfort [Recovered/Resolved]
  - Headache [Unknown]
  - Injection site pain [None]
  - Injection site erythema [Recovered/Resolved]
